FAERS Safety Report 9157253 (Version 1)
Quarter: 2013Q1

REPORT INFORMATION
  Report Type: Spontaneous
  Country: FR (occurrence: FR)
  Receive Date: 20130312
  Receipt Date: 20130312
  Transmission Date: 20140127
  Serious: Yes (Life-Threatening, Hospitalization)
  Sender: FDA-Public Use
  Company Number: FR-B.I. PHARMACEUTICALS,INC./RIDGEFIELD-2013-FF-00650FF

PATIENT
  Age: 79 Year
  Sex: Female

DRUGS (2)
  1. MICARDIS [Suspect]
     Dosage: 80 MG
     Route: 048
     Dates: end: 20111128
  2. FUROSEMIDE [Suspect]
     Dosage: 20 MG
     Route: 048
     Dates: end: 20111128

REACTIONS (2)
  - Circulatory collapse [Recovered/Resolved]
  - Malaise [Recovered/Resolved]
